FAERS Safety Report 4681620-6 (Version None)
Quarter: 2005Q2

REPORT INFORMATION
  Report Type: 
  Country: None (occurrence: None)
  Receive Date: 20050602
  Receipt Date: 20050520
  Transmission Date: 20051028
  Serious: Yes (Other)
  Sender: FDA-Public Use
  Company Number: 2005078551

PATIENT
  Age: 70 Year
  Sex: Male
  Weight: 77.1115 kg

DRUGS (18)
  1. CORTIZONE-10 ANTI-ITCH (HYDROCORTISONE) [Suspect]
     Indication: OPEN WOUND
     Dosage: 1 APPL TWICE, OPHTHALMIC
     Route: 047
     Dates: start: 20050519, end: 20050519
  2. METHADONE HCL [Concomitant]
  3. LEVOTHYROXINE SODIUM [Concomitant]
  4. SERTRALINE HCL [Concomitant]
  5. TAMSULOSIN HYDROCHLORIDE (TAMSULOSIN HYDROCHLORIDE) [Concomitant]
  6. CLONAZEPAM [Concomitant]
  7. MIRTAZAPINE [Concomitant]
  8. MAGNESIUN OXIDE (MAGNESIUM OXIDE) [Concomitant]
  9. RANITIDINE HYDROCHLORIDE [Concomitant]
  10. QUININE SULFATE [Concomitant]
  11. DIGOXIN [Concomitant]
  12. SPIRONOLACTONE [Concomitant]
  13. ALLOPURINOL [Concomitant]
  14. CARVEDIOLOL (CARVEDILOL) [Concomitant]
  15. GLYCERYL TRINITRATE (GLYCERYL TRINITRATE) [Concomitant]
  16. AMIODARONE HCL [Concomitant]
  17. CYANOCOBALAMIN [Concomitant]
  18. LATANOPROST [Concomitant]

REACTIONS (2)
  - ACCIDENTAL EXPOSURE [None]
  - VISUAL DISTURBANCE [None]
